FAERS Safety Report 25860094 (Version 1)
Quarter: 2025Q3

REPORT INFORMATION
  Report Type: Spontaneous
  Country: US (occurrence: None)
  Receive Date: 20250927
  Receipt Date: 20250927
  Transmission Date: 20251020
  Serious: Yes (Death, Life-Threatening, Hospitalization, Disabling, Other)
  Sender: FDA-CTU
  Company Number: None

PATIENT
  Age: 54 Year
  Sex: Female
  Weight: 40.5 kg

DRUGS (2)
  1. PROLASTIN-C LIQUID [Suspect]
     Active Substance: .ALPHA.1-PROTEINASE INHIBITOR HUMAN
     Indication: Lung disorder
     Dosage: OTHER QUANTITY : 3 INJECTION(S);?OTHER FREQUENCY : WEEKLY;?
     Route: 042
  2. Oxygen Machine [Concomitant]

REACTIONS (4)
  - Hypersensitivity [None]
  - Cardiac arrest [None]
  - Heart rate increased [None]
  - Blood pressure increased [None]

NARRATIVE: CASE EVENT DATE: 20250817
